FAERS Safety Report 11495030 (Version 1)
Quarter: 2015Q3

REPORT INFORMATION
  Report Type: Spontaneous
  Country: US (occurrence: US)
  Receive Date: 20150911
  Receipt Date: 20150911
  Transmission Date: 20151125
  Serious: No
  Sender: FDA-Public Use
  Company Number: US-ROCHE-1034334

PATIENT
  Age: 52 Year
  Sex: Male

DRUGS (9)
  1. ASPIRIN. [Concomitant]
     Active Substance: ASPIRIN
  2. IBUPROFEN. [Concomitant]
     Active Substance: IBUPROFEN
  3. PRILOSEC [Concomitant]
     Active Substance: OMEPRAZOLE MAGNESIUM
     Route: 065
  4. RIBASPHERE RIBAPAK [Suspect]
     Active Substance: RIBAVIRIN
     Indication: PRODUCT USED FOR UNKNOWN INDICATION
     Dosage: 600 MG IN MORNING AND 400 MG IN EVENING
     Route: 065
     Dates: start: 20120107
  5. MULTIVITAMIN [Concomitant]
     Active Substance: VITAMINS
  6. ALPRAZOLAM. [Concomitant]
     Active Substance: ALPRAZOLAM
  7. RIBAVIRIN. [Suspect]
     Active Substance: RIBAVIRIN
     Indication: PRODUCT USED FOR UNKNOWN INDICATION
     Route: 048
  8. VICTRELIS [Suspect]
     Active Substance: BOCEPREVIR
     Indication: PRODUCT USED FOR UNKNOWN INDICATION
     Route: 048
     Dates: start: 20111017
  9. PEG-INTERFERON ALFA 2A [Suspect]
     Active Substance: PEGINTERFERON ALFA-2A
     Indication: PRODUCT USED FOR UNKNOWN INDICATION
     Route: 065

REACTIONS (11)
  - Dry skin [Unknown]
  - Influenza like illness [Unknown]
  - Fatigue [Unknown]
  - Disturbance in attention [Unknown]
  - Dry mouth [Unknown]
  - Anaemia [Unknown]
  - Decreased appetite [Unknown]
  - Peripheral swelling [Unknown]
  - Nausea [Unknown]
  - Pruritus [Unknown]
  - Diarrhoea [Unknown]

NARRATIVE: CASE EVENT DATE: 20111015
